FAERS Safety Report 6838467-1 (Version None)
Quarter: 2010Q3

REPORT INFORMATION
  Report Type: 
  Country: None (occurrence: None)
  Receive Date: 20100713
  Receipt Date: 20070611
  Transmission Date: 20110219
  Serious: No
  Sender: FDA-Public Use
  Company Number: US-PFIZER INC-2007049571

PATIENT
  Sex: Female
  Weight: 75 kg

DRUGS (9)
  1. CHANTIX [Suspect]
     Indication: SMOKING CESSATION THERAPY
     Dates: start: 20070605
  2. REMICADE [Concomitant]
  3. PAXIL [Concomitant]
  4. REMERON [Concomitant]
  5. PERCOCET [Concomitant]
  6. ZOCOR [Concomitant]
  7. TOPROL-XL [Concomitant]
  8. BYETTA [Concomitant]
  9. METFORMIN [Concomitant]

REACTIONS (4)
  - DIARRHOEA [None]
  - HYPOPHAGIA [None]
  - NAUSEA [None]
  - VOMITING [None]
